FAERS Safety Report 25903648 (Version 1)
Quarter: 2025Q4

REPORT INFORMATION
  Report Type: Spontaneous
  Country: US (occurrence: US)
  Receive Date: 20251010
  Receipt Date: 20251010
  Transmission Date: 20260117
  Serious: No
  Sender: AMGEN
  Company Number: US-AMGEN-USASP2025197577

PATIENT
  Age: 63 Year
  Sex: Female

DRUGS (4)
  1. REPATHA [Suspect]
     Active Substance: EVOLOCUMAB
     Indication: Product used for unknown indication
     Dosage: 140 MILLIGRAM, Q2WK
     Route: 065
  2. OZEMPIC [Concomitant]
     Active Substance: SEMAGLUTIDE
     Indication: Diabetes mellitus
     Dosage: 2 MILLIGRAM, QWK
  3. IBUPROFEN [Concomitant]
     Active Substance: IBUPROFEN
  4. ASPIRIN [Concomitant]
     Active Substance: ASPIRIN
     Indication: Sinus headache
     Dosage: 800 OR 845 MG

REACTIONS (6)
  - Product communication issue [Unknown]
  - Wrong technique in product usage process [Unknown]
  - Device difficult to use [Unknown]
  - Drug dose omission by device [Unknown]
  - Incorrect disposal of product [Unknown]
  - Sinus headache [Recovered/Resolved]

NARRATIVE: CASE EVENT DATE: 20250914
